FAERS Safety Report 13360382 (Version 1)
Quarter: 2017Q1

REPORT INFORMATION
  Report Type: Spontaneous
  Country: US (occurrence: US)
  Receive Date: 20170322
  Receipt Date: 20170322
  Transmission Date: 20170429
  Serious: No
  Sender: FDA-Public Use
  Company Number: US-BAYER-2017-054940

PATIENT
  Age: 70 Year
  Sex: Male

DRUGS (1)
  1. GADAVIST [Suspect]
     Active Substance: GADOBUTROL
     Indication: NUCLEAR MAGNETIC RESONANCE IMAGING BRAIN
     Dosage: 8 UNK, UNK 8 CC
     Dates: start: 20170321, end: 20170321

REACTIONS (4)
  - Dyspnoea [None]
  - Erythema [None]
  - Throat tightness [None]
  - Cough [None]

NARRATIVE: CASE EVENT DATE: 20170321
